FAERS Safety Report 10162932 (Version 1)
Quarter: 2014Q2

REPORT INFORMATION
  Report Type: Spontaneous
  Country: US (occurrence: US)
  Receive Date: 20140509
  Receipt Date: 20140509
  Transmission Date: 20141212
  Serious: No
  Sender: FDA-Public Use
  Company Number: US-PFIZER INC-2014121811

PATIENT
  Sex: Female

DRUGS (8)
  1. PROCARDIA [Suspect]
     Dosage: UNK
  2. ALTACE [Suspect]
     Dosage: UNK
  3. CORTISONE [Suspect]
     Dosage: UNK
  4. CIPROFLOXACIN [Suspect]
     Dosage: UNK
  5. LASIX [Suspect]
     Dosage: UNK
  6. LOVASTATIN [Suspect]
     Dosage: UNK
  7. NITROFURANTOIN [Suspect]
     Dosage: UNK
  8. TORADOL [Suspect]
     Dosage: UNK

REACTIONS (1)
  - Drug hypersensitivity [Unknown]
